FAERS Safety Report 15708482 (Version 1)
Quarter: 2018Q4

REPORT INFORMATION
  Report Type: Spontaneous
  Country: GB (occurrence: GB)
  Receive Date: 20181211
  Receipt Date: 20181211
  Transmission Date: 20190205
  Serious: Yes (Other)
  Sender: FDA-Public Use
  Company Number: GB-TEVA-2018-GB-984018

PATIENT
  Age: 73 Year
  Sex: Male
  Weight: 67 kg

DRUGS (29)
  1. FLUCONAZOLE. [Suspect]
     Active Substance: FLUCONAZOLE
     Dosage: 150 MILLIGRAM DAILY;
     Dates: start: 20181101
  2. MICONAZOLE. [Concomitant]
     Active Substance: MICONAZOLE
     Dosage: 4 DOSAGE FORMS DAILY;
     Dates: start: 20181105
  3. PARACETAMOL [Concomitant]
     Active Substance: ACETAMINOPHEN
     Indication: PAIN
     Dosage: 8 DOSAGE FORMS DAILY;
     Dates: start: 20160314
  4. QUININE [Concomitant]
     Active Substance: QUININE
     Dosage: 1 DOSAGE FORMS DAILY; AT NIGHT.
     Dates: start: 20160209
  5. ALENDRONIC ACID [Concomitant]
     Active Substance: ALENDRONIC ACID
     Dates: start: 20160209, end: 20181004
  6. COLIFOAM [Concomitant]
     Active Substance: HYDROCORTISONE
     Dosage: 1 DOSAGE FORMS DAILY;
     Dates: start: 20161123, end: 20181004
  7. PREGABALIN. [Concomitant]
     Active Substance: PREGABALIN
     Dosage: 3 DOSAGE FORMS DAILY;
     Dates: start: 20181001
  8. SEEBRI BREEZHALER PRODUCT [Concomitant]
     Dosage: 1 DOSAGE FORMS DAILY;
     Route: 055
     Dates: start: 20160209
  9. DUORESP SPIROMAX [Concomitant]
     Active Substance: BUDESONIDE\FORMOTEROL
     Dosage: 2 DOSAGE FORMS DAILY; PUFF.
     Route: 055
     Dates: start: 20180524
  10. DENOSUMAB [Concomitant]
     Active Substance: DENOSUMAB
     Dosage: OCTOBER AND APRIL.
     Dates: start: 20181018
  11. SILDENAFIL. [Concomitant]
     Active Substance: SILDENAFIL
     Dosage: AS DIRECTED.
     Dates: start: 20160729, end: 20180917
  12. PREDNISOLONE. [Concomitant]
     Active Substance: PREDNISOLONE
     Dosage: 2 DOSAGE FORMS DAILY; APPLY.
     Dates: start: 20160209, end: 20181004
  13. BALSALAZIDE [Concomitant]
     Active Substance: BALSALAZIDE
     Dosage: 9 DOSAGE FORMS DAILY;
     Dates: start: 20160906
  14. BUDESONIDE. [Concomitant]
     Active Substance: BUDESONIDE
     Dosage: 1 DOSAGE FORMS DAILY; USE.
     Dates: start: 20180910
  15. COCODAMOL [Concomitant]
     Active Substance: ACETAMINOPHEN\CODEINE PHOSPHATE
     Dosage: 8 DOSAGE FORMS DAILY; TWO CAN BE TAKEN UP TO
     Dates: start: 20171204
  16. AMOXICILLIN. [Concomitant]
     Active Substance: AMOXICILLIN
     Dosage: 3 DOSAGE FORMS DAILY;
     Dates: start: 20181025, end: 20181101
  17. TRIAMCINOLONE ACETONIDE. [Concomitant]
     Active Substance: TRIAMCINOLONE ACETONIDE
     Dosage: 1 DOSAGE FORMS DAILY; PUFF.
     Dates: start: 20160209
  18. SODIUM CROMOGLICATE [Concomitant]
     Active Substance: CROMOLYN SODIUM
     Dosage: AS DIRECTED.
     Dates: start: 20160209
  19. TADALAFIL. [Concomitant]
     Active Substance: TADALAFIL
     Dosage: TAKE ONE OR TWO TABLETS THIRTY MINUTES
     Dates: start: 20180917
  20. GABAPENTIN. [Concomitant]
     Active Substance: GABAPENTIN
     Dosage: 9 DOSAGE FORMS DAILY;
     Dates: start: 20180731, end: 20180807
  21. SALBUTAMOL [Concomitant]
     Active Substance: ALBUTEROL
     Dosage: 2 DOSAGE FORMS DAILY; TWO PUFFS AS REQUIRED.
     Dates: start: 20160209
  22. BUPRENORPHINE. [Concomitant]
     Active Substance: BUPRENORPHINE
     Dosage: APPLY.
     Dates: start: 20180614
  23. CARBOCISTEINE [Concomitant]
     Active Substance: CARBOCYSTEINE
     Dosage: 6 DOSAGE FORMS DAILY;
     Dates: start: 20171110, end: 20180926
  24. BISACODYL. [Concomitant]
     Active Substance: BISACODYL
     Dosage: 1 DOSAGE FORMS DAILY; POST OPERATION.
     Dates: start: 20180410
  25. MOVICOL [Concomitant]
     Active Substance: POLYETHYLENE GLYCOL 3350\POTASSIUM CHLORIDE\SODIUM BICARBONATE\SODIUM CHLORIDE
     Dosage: HALF, ONE OR TWO (OR MORE) SACHETS TO BE TAKEN.
     Dates: start: 20180723
  26. LANSOPRAZOLE. [Concomitant]
     Active Substance: LANSOPRAZOLE
     Dosage: 2 DOSAGE FORMS DAILY;
     Dates: start: 20160209
  27. ADCAL [Concomitant]
     Active Substance: CALCIUM CARBONATE
     Dosage: 2 DOSAGE FORMS DAILY;
     Dates: start: 20160209
  28. MESALAZINE [Concomitant]
     Active Substance: MESALAMINE
     Dosage: INSERT ONE METERED APPLICATION INTO THE RECTUM.
     Route: 054
     Dates: start: 20161123, end: 20181004
  29. EPADERM [Concomitant]
     Active Substance: MINERAL OIL\PETROLATUM\WAX, EMULSIFYING
     Dosage: APPLY TO SKIN OR USE AS A SOAP SUBSTITUTE.
     Dates: start: 20160209

REACTIONS (2)
  - Mouth swelling [Unknown]
  - Lip swelling [Unknown]

NARRATIVE: CASE EVENT DATE: 20181105
